FAERS Safety Report 6450338-1 (Version None)
Quarter: 2009Q4

REPORT INFORMATION
  Report Type: 
  Country: None (occurrence: None)
  Receive Date: 20091123
  Receipt Date: 20091110
  Transmission Date: 20100525
  Serious: Yes (Other)
  Sender: FDA-Public Use
  Company Number: GR-AMGEN-US369642

PATIENT
  Age: 53 Year
  Sex: Female

DRUGS (4)
  1. ENBREL [Suspect]
     Indication: RHEUMATOID ARTHRITIS
     Route: 058
     Dates: start: 20000101, end: 20091030
  2. ISCOVER [Concomitant]
  3. METHOTREXATE [Concomitant]
     Route: 048
  4. CORTISONE [Concomitant]

REACTIONS (4)
  - DYSARTHRIA [None]
  - HYPOAESTHESIA [None]
  - MONOPLEGIA [None]
  - NUCLEAR MAGNETIC RESONANCE IMAGING ABNORMAL [None]
